FAERS Safety Report 6835531-8 (Version None)
Quarter: 2010Q3

REPORT INFORMATION
  Report Type: 
  Country: None (occurrence: None)
  Receive Date: 20100713
  Receipt Date: 20100701
  Transmission Date: 20110219
  Serious: Yes (Other)
  Sender: FDA-Public Use
  Company Number: PHHY2010BR44159

PATIENT
  Sex: Female
  Weight: 87 kg

DRUGS (2)
  1. CATAFLAM [Suspect]
  2. DORFLEX [Concomitant]

REACTIONS (2)
  - HYPERSENSITIVITY [None]
  - RHEUMATOID ARTHRITIS [None]
